FAERS Safety Report 4890443-4 (Version None)
Quarter: 2005Q4

REPORT INFORMATION
  Report Type: 
  Country: None (occurrence: None)
  Receive Date: 20051216
  Receipt Date: 20051006
  Transmission Date: 20060501
  Serious: No
  Sender: FDA-Public Use
  Company Number: BDI-007633

PATIENT
  Age: 77 Year
  Weight: 88 kg

DRUGS (7)
  1. MULTIHANCE [Suspect]
     Indication: BACK PAIN
     Dosage: 19 ML ONCE IV
     Route: 042
     Dates: start: 20051005, end: 20051005
  2. MULTIHANCE [Suspect]
     Indication: NUCLEAR MAGNETIC RESONANCE IMAGING
     Dosage: 19 ML ONCE IV
     Route: 042
     Dates: start: 20051005, end: 20051005
  3. LIPITOR [Concomitant]
  4. SPIRALACTONE [Concomitant]
  5. ENAPRIL [Concomitant]
  6. WARFARIN [Concomitant]
  7. NEURONTIN [Concomitant]

REACTIONS (1)
  - NAUSEA [None]
